FAERS Safety Report 6430259-0 (Version None)
Quarter: 2009Q4

REPORT INFORMATION
  Report Type: 
  Country: None (occurrence: None)
  Receive Date: 20091104
  Receipt Date: 20091104
  Transmission Date: 20100525
  Serious: Yes (Death)
  Sender: FDA-Public Use
  Company Number: None

PATIENT
  Age: 36 Year
  Sex: Female
  Weight: 146.9654 kg

DRUGS (2)
  1. LOVENOX [Suspect]
     Indication: PULMONARY EMBOLISM
     Dosage: 100MG TWICE DAILY SQ, SANOFI AVENTIS
     Route: 058
     Dates: start: 20090829, end: 20090902
  2. LOVENOX [Suspect]
     Indication: PULMONARY EMBOLISM
     Dosage: 30MG TWICE DAILY SQ, SANOFI AVENTIS
     Route: 058
     Dates: start: 20090829, end: 20090902

REACTIONS (10)
  - ACIDOSIS [None]
  - ACUTE PULMONARY OEDEMA [None]
  - CARDIO-RESPIRATORY ARREST [None]
  - CHOLELITHIASIS [None]
  - CIRCULATORY COLLAPSE [None]
  - FALL [None]
  - HAEMOGLOBIN DECREASED [None]
  - HYPOVOLAEMIC SHOCK [None]
  - MUSCLE HAEMORRHAGE [None]
  - RENAL FAILURE ACUTE [None]
